FAERS Safety Report 7819987-X (Version None)
Quarter: 2011Q4

REPORT INFORMATION
  Report Type: 
  Country: None (occurrence: None)
  Receive Date: 20111018
  Receipt Date: 20111003
  Transmission Date: 20120403
  Serious: Yes (Hospitalization)
  Sender: FDA-Public Use
  Company Number: US-EISAI INC-E3810-04989-SOL-US

PATIENT
  Age: 42 Year
  Sex: Female
  Weight: 112 kg

DRUGS (4)
  1. PRILOSEC [Suspect]
     Dosage: UNKNOWN
  2. ACIPHEX [Suspect]
     Dosage: UNKNOWN
     Route: 048
  3. SUNITINIB MALATE [Suspect]
     Dosage: UNKNOWN
     Route: 048
     Dates: start: 20081112
  4. SORAFENIB [Suspect]
     Dosage: UNKNOWN
     Route: 048
     Dates: start: 20081113

REACTIONS (6)
  - HYPERTENSION [None]
  - PANCREATITIS [None]
  - PERIPHERAL SENSORY NEUROPATHY [None]
  - LIPASE INCREASED [None]
  - BLOOD AMYLASE INCREASED [None]
  - MYALGIA [None]
